FAERS Safety Report 4984393-2 (Version None)
Quarter: 2006Q2

REPORT INFORMATION
  Report Type: 
  Country: None (occurrence: None)
  Receive Date: 20060420
  Receipt Date: 20060411
  Transmission Date: 20061013
  Serious: Yes (Hospitalization, Other)
  Sender: FDA-Public Use
  Company Number: 2006-04-0660

PATIENT
  Age: 67 Year
  Sex: Male

DRUGS (1)
  1. BETAMETHASONE [Suspect]
     Indication: PAIN

REACTIONS (12)
  - ABSCESS [None]
  - BLOOD GLUCOSE INCREASED [None]
  - DYSPHAGIA [None]
  - DYSPNOEA [None]
  - HAEMATOCRIT DECREASED [None]
  - HAEMOGLOBIN DECREASED [None]
  - MASS [None]
  - NUCHAL RIGIDITY [None]
  - OSTEOLYSIS [None]
  - SEPTIC SHOCK [None]
  - SPONDYLOLYSIS [None]
  - STAPHYLOCOCCAL INFECTION [None]
